FAERS Safety Report 17359956 (Version 5)
Quarter: 2024Q3

REPORT INFORMATION
  Report Type: Spontaneous
  Country: US (occurrence: US)
  Receive Date: 20200203
  Receipt Date: 20240916
  Transmission Date: 20241017
  Serious: Yes (Hospitalization, Other)
  Sender: GILEAD
  Company Number: US-GILEAD-2020-0448795

PATIENT
  Age: 54 Year
  Sex: Male
  Weight: 99.773 kg

DRUGS (104)
  1. TRUVADA [Suspect]
     Active Substance: EMTRICITABINE\TENOFOVIR DISOPROXIL FUMARATE
     Indication: HIV infection
     Dosage: UNK
     Route: 048
     Dates: start: 2004
  2. TRUVADA [Suspect]
     Active Substance: EMTRICITABINE\TENOFOVIR DISOPROXIL FUMARATE
     Dosage: UNK
     Route: 048
     Dates: start: 20070326, end: 20090312
  3. TRUVADA [Suspect]
     Active Substance: EMTRICITABINE\TENOFOVIR DISOPROXIL FUMARATE
     Dosage: UNK
     Route: 048
     Dates: start: 20070101, end: 20091231
  4. BIKTARVY [Concomitant]
     Active Substance: BICTEGRAVIR SODIUM\EMTRICITABINE\TENOFOVIR ALAFENAMIDE FUMARATE
  5. GENVOYA [Concomitant]
     Active Substance: COBICISTAT\ELVITEGRAVIR\EMTRICITABINE\TENOFOVIR ALAFENAMIDE FUMARATE
  6. AMPHOTERICIN B [Concomitant]
     Active Substance: AMPHOTERICIN B
     Dosage: UNK
  7. CALCIUM [Concomitant]
     Active Substance: CALCIUM
     Dosage: UNK
     Dates: start: 20110526, end: 20171026
  8. FUROSEMIDE [Concomitant]
     Active Substance: FUROSEMIDE
     Dosage: UNK
     Dates: start: 20120309, end: 20191202
  9. RENVELA [Concomitant]
     Active Substance: SEVELAMER CARBONATE
  10. PREDNISONE [Concomitant]
     Active Substance: PREDNISONE
  11. INTELENCE [Concomitant]
     Active Substance: ETRAVIRINE
  12. TIVICAY [Concomitant]
     Active Substance: DOLUTEGRAVIR SODIUM
  13. CLONIDINE [Concomitant]
     Active Substance: CLONIDINE
  14. INSULIN NOS [Concomitant]
     Active Substance: INSULIN NOS
  15. ABACAVIR [Concomitant]
     Active Substance: ABACAVIR
  16. ACETAMINOPHEN [Concomitant]
     Active Substance: ACETAMINOPHEN
  17. ALBUMIN HUMAN [Concomitant]
     Active Substance: ALBUMIN HUMAN
  18. ALBUTEROL [Concomitant]
     Active Substance: ALBUTEROL
     Indication: Asthma
  19. ALTEPLASE [Concomitant]
     Active Substance: ALTEPLASE
     Indication: Ischaemic stroke
  20. AMIODARONE [Concomitant]
     Active Substance: AMIODARONE
     Indication: Heart rate irregular
  21. MEPRON [Concomitant]
     Active Substance: ATOVAQUONE
     Indication: Pneumonia
  22. ASCORBIC ACID [Concomitant]
     Active Substance: ASCORBIC ACID
     Indication: Hypovitaminosis
  23. ASPIRIN [Concomitant]
     Active Substance: ASPIRIN
     Indication: Pain
  24. ATORVASTATIN [Concomitant]
     Active Substance: ATORVASTATIN
     Indication: Blood cholesterol increased
  25. AZITHROMYCIN [Concomitant]
     Active Substance: AZITHROMYCIN
     Indication: Bacterial infection
  26. BACLOFEN [Concomitant]
     Active Substance: BACLOFEN
  27. BENZOCAINE [Concomitant]
     Active Substance: BENZOCAINE
  28. BENZONATATE [Concomitant]
     Active Substance: BENZONATATE
  29. BISACODYL [Concomitant]
     Active Substance: BISACODYL
     Indication: Constipation
  30. BUDESONIDE [Concomitant]
     Active Substance: BUDESONIDE
  31. BUDESONIDE\FORMOTEROL [Concomitant]
     Active Substance: BUDESONIDE\FORMOTEROL
  32. CALCIUM CARBONATE [Concomitant]
     Active Substance: CALCIUM CARBONATE
  33. CARVEDILOL [Concomitant]
     Active Substance: CARVEDILOL
     Indication: Hypertension
  34. CEFEPIME [Concomitant]
     Active Substance: CEFEPIME HYDROCHLORIDE
  35. CEFTRIAXONE [Concomitant]
     Active Substance: CEFTRIAXONE\CEFTRIAXONE SODIUM
  36. CHLORHEXIDINE GLUCONATE [Concomitant]
     Active Substance: CHLORHEXIDINE GLUCONATE
  37. CHLORPROMAZINE [Concomitant]
     Active Substance: CHLORPROMAZINE
     Indication: Vomiting
  38. CHLORPROMAZINE [Concomitant]
     Active Substance: CHLORPROMAZINE
     Indication: Anxiety
  39. CIPROFLOXACIN [Concomitant]
     Active Substance: CIPROFLOXACIN
  40. CISATRACURIUM [Concomitant]
     Active Substance: CISATRACURIUM
  41. CLINDAMYCIN [Concomitant]
     Active Substance: CLINDAMYCIN
  42. CLOPIDOGREL [Concomitant]
     Active Substance: CLOPIDOGREL BISULFATE
  43. DAPSONE [Concomitant]
     Active Substance: DAPSONE
  44. DAPTOMYCIN [Concomitant]
     Active Substance: DAPTOMYCIN
  45. DARBEPOETIN ALFA [Concomitant]
     Active Substance: DARBEPOETIN ALFA
  46. DARUNAVIR [Concomitant]
     Active Substance: DARUNAVIR
  47. DEXTROSE [Concomitant]
     Active Substance: DEXTROSE\DEXTROSE MONOHYDRATE
     Indication: Blood glucose decreased
  48. DIATRIZOATE MEGLUMINE [Concomitant]
     Active Substance: DIATRIZOATE MEGLUMINE
  49. DIGOXIN [Concomitant]
     Active Substance: DIGOXIN
     Indication: Cardiac failure
  50. DIPHENHYDRAMINE [Concomitant]
     Active Substance: DIPHENHYDRAMINE
  51. DOCUSATE SODIUM [Concomitant]
     Active Substance: DOCUSATE SODIUM
  52. DOLUTEGRAVIR [Concomitant]
     Active Substance: DOLUTEGRAVIR
  53. DORNASE ALFA [Concomitant]
     Active Substance: DORNASE ALFA
  54. DOXYCYCLINE [Concomitant]
     Active Substance: DOXYCYCLINE\DOXYCYCLINE HYCLATE
  55. EFAVIRENZ [Concomitant]
     Active Substance: EFAVIRENZ
  56. ENOXAPARIN [Concomitant]
     Active Substance: ENOXAPARIN
  57. EPIVIR [Concomitant]
     Active Substance: LAMIVUDINE
  58. ERGOCALCIFEROL [Concomitant]
     Active Substance: ERGOCALCIFEROL
  59. ESOMEPRAZOLE [Concomitant]
     Active Substance: ESOMEPRAZOLE
     Indication: Gastrooesophageal reflux disease
  60. ETOMIDATE [Concomitant]
     Active Substance: ETOMIDATE
  61. ETRAVIRINE [Concomitant]
     Active Substance: ETRAVIRINE
  62. EZETIMIBE [Concomitant]
     Active Substance: EZETIMIBE
  63. FAMOTIDINE [Concomitant]
     Active Substance: FAMOTIDINE
  64. FENTANYL [Concomitant]
     Active Substance: FENTANYL\FENTANYL CITRATE
  65. FERROUS SULFATE [Concomitant]
     Active Substance: FERROUS SULFATE
     Indication: Anaemia
  66. FLUCONAZOLE [Concomitant]
     Active Substance: FLUCONAZOLE
  67. ADVAIR HFA [Concomitant]
     Active Substance: FLUTICASONE PROPIONATE\SALMETEROL XINAFOATE
  68. FOSAMPRENAVIR [Concomitant]
     Active Substance: FOSAMPRENAVIR
  69. GABAPENTIN [Concomitant]
     Active Substance: GABAPENTIN
  70. GLIPIZIDE [Concomitant]
     Active Substance: GLIPIZIDE
  71. GLUCAGON [Concomitant]
     Active Substance: GLUCAGON\GLUCAGON HYDROCHLORIDE\WATER
  72. GLYBURIDE [Concomitant]
     Active Substance: GLYBURIDE
  73. GOLYTELY [Concomitant]
     Active Substance: POLYETHYLENE GLYCOL 3350\POTASSIUM CHLORIDE\SODIUM BICARBONATE\SODIUM CHLORIDE\SODIUM SULFATE
  74. HEPARIN [Concomitant]
     Active Substance: HEPARIN SODIUM
  75. HYDRALAZINE [Concomitant]
     Active Substance: HYDRALAZINE HYDROCHLORIDE
  76. HYDROCHLOROTHIAZIDE [Concomitant]
     Active Substance: HYDROCHLOROTHIAZIDE
  77. HYDROCODONE [Concomitant]
     Active Substance: HYDROCODONE
  78. HYDROXYZINE [Concomitant]
     Active Substance: HYDROXYZINE HYDROCHLORIDE
  79. INSULIN DETEMIR [Concomitant]
     Active Substance: INSULIN DETEMIR
  80. INSULIN BEEF [Concomitant]
     Active Substance: INSULIN BEEF
  81. IOHEXOL [Concomitant]
     Active Substance: IOHEXOL
  82. IPRATROPIUM [Concomitant]
     Active Substance: IPRATROPIUM
  83. IPRATROPIUM BROMIDE [Concomitant]
     Active Substance: IPRATROPIUM BROMIDE\IPRATROPIUM BROMIDE ANHYDROUS
  84. ISOSORBIDE DINITRATE [Concomitant]
     Active Substance: ISOSORBIDE DINITRATE
  85. ITRACONAZOLE [Concomitant]
     Active Substance: ITRACONAZOLE
  86. LACTATED RINGERS SOLUTION [Concomitant]
     Active Substance: CALCIUM CHLORIDE\POTASSIUM CHLORIDE\SODIUM CHLORIDE\SODIUM LACTATE
  87. LAMIVUDINE [Concomitant]
     Active Substance: LAMIVUDINE
  88. LANSOPRAZOLE [Concomitant]
     Active Substance: LANSOPRAZOLE
  89. LEVOFLOXACIN [Concomitant]
     Active Substance: LEVOFLOXACIN
  90. LEVOTHYROXINE [Concomitant]
     Active Substance: LEVOTHYROXINE\LEVOTHYROXINE SODIUM
  91. LEXIVA [Concomitant]
     Active Substance: FOSAMPRENAVIR CALCIUM
  92. LINEZOLID [Concomitant]
     Active Substance: LINEZOLID
  93. LISINOPRIL [Concomitant]
     Active Substance: LISINOPRIL
  94. OMNIPAQUE [Concomitant]
     Active Substance: IOHEXOL
  95. LOPERAMIDE [Concomitant]
     Active Substance: LOPERAMIDE
  96. MAGNESIUM SULFATE [Concomitant]
     Active Substance: MAGNESIUM SULFATE\MAGNESIUM SULFATE HEPTAHYDRATE
  97. MANNITOL [Concomitant]
     Active Substance: MANNITOL
  98. METOCLOPRAMIDE [Concomitant]
     Active Substance: METOCLOPRAMIDE
  99. METOPROLOL [Concomitant]
     Active Substance: METOPROLOL
  100. METRONIDAZOLE [Concomitant]
     Active Substance: METRONIDAZOLE
  101. MIDAZOLAM [Concomitant]
     Active Substance: MIDAZOLAM
  102. MINOXIDIL [Concomitant]
     Active Substance: MINOXIDIL
  103. NALOXONE [Concomitant]
     Active Substance: NALOXONE
  104. NEXIUM I.V. [Concomitant]
     Active Substance: ESOMEPRAZOLE SODIUM

REACTIONS (8)
  - Renal failure [Unknown]
  - Chronic kidney disease [Not Recovered/Not Resolved]
  - Renal failure [Not Recovered/Not Resolved]
  - Emotional distress [Not Recovered/Not Resolved]
  - Anxiety [Not Recovered/Not Resolved]
  - Anhedonia [Not Recovered/Not Resolved]
  - Economic problem [Not Recovered/Not Resolved]
  - Pain [Not Recovered/Not Resolved]

NARRATIVE: CASE EVENT DATE: 20090428
